FAERS Safety Report 16314571 (Version 3)
Quarter: 2021Q4

REPORT INFORMATION
  Report Type: Spontaneous
  Country: JP (occurrence: JP)
  Receive Date: 20190515
  Receipt Date: 20211122
  Transmission Date: 20220303
  Serious: Yes (Hospitalization)
  Sender: FDA-Public Use
  Company Number: JP-TEVA-2019-JP-1049576

PATIENT
  Age: 71 Year
  Sex: Male

DRUGS (2)
  1. BICALUTAMIDE [Suspect]
     Active Substance: BICALUTAMIDE
     Indication: Prostate cancer metastatic
     Dosage: 80 MILLIGRAM DAILY; MEDICAL CASTRATION THERAPY
     Route: 048
  2. LEUPROLIDE ACETATE [Suspect]
     Active Substance: LEUPROLIDE ACETATE
     Indication: Prostate cancer metastatic
     Dosage: MEDICAL CASTRATION THERAPY
     Route: 050

REACTIONS (7)
  - Torsade de pointes [Recovered/Resolved]
  - Long QT syndrome [Recovering/Resolving]
  - Ventricular fibrillation [Recovered/Resolved]
  - Cardiac failure congestive [Recovered/Resolved]
  - Cardiomegaly [Recovering/Resolving]
  - Left ventricular dilatation [Recovered/Resolved]
  - Blood testosterone decreased [Recovering/Resolving]
